FAERS Safety Report 12628719 (Version 1)
Quarter: 2016Q3

REPORT INFORMATION
  Report Type: Spontaneous
  Country: LB (occurrence: LB)
  Receive Date: 20160808
  Receipt Date: 20160808
  Transmission Date: 20161109
  Serious: Yes (Other)
  Sender: FDA-Public Use
  Company Number: LB-SCIEGEN PHARMACEUTICALS INC-2016SCILIT00347

PATIENT
  Age: 30 Year
  Sex: Female

DRUGS (1)
  1. LAMOTRIGINE TABLETS [Suspect]
     Active Substance: LAMOTRIGINE
     Indication: SOMATIC SYMPTOM DISORDER
     Dosage: 50 MG, QD
     Route: 065

REACTIONS (11)
  - Rash morbilliform [Unknown]
  - Lymphadenopathy [Unknown]
  - Pyrexia [Unknown]
  - Liver function test abnormal [Unknown]
  - Malaise [Unknown]
  - Drug reaction with eosinophilia and systemic symptoms [Unknown]
  - Face oedema [Unknown]
  - Hyponatraemia [Recovered/Resolved]
  - Eosinophilia [Unknown]
  - Periorbital oedema [Unknown]
  - Inappropriate antidiuretic hormone secretion [Unknown]
